FAERS Safety Report 23645888 (Version 1)
Quarter: 2024Q1

REPORT INFORMATION
  Report Type: Spontaneous
  Country: PL (occurrence: PL)
  Receive Date: 20240319
  Receipt Date: 20240319
  Transmission Date: 20240410
  Serious: Yes (Hospitalization, Disabling, Other)
  Sender: FDA-Public Use
  Company Number: None

PATIENT
  Age: 83 Year
  Sex: Female
  Weight: 91 kg

DRUGS (339)
  1. DONEPEZIL [Interacting]
     Active Substance: DONEPEZIL
     Indication: Product used for unknown indication
     Dosage: 5 MILLIGRAM, QD (0-0-1)
     Route: 065
  2. DONEPEZIL [Interacting]
     Active Substance: DONEPEZIL
     Dosage: 5 MILLIGRAM
     Route: 065
  3. POTASSIUM CHLORIDE [Interacting]
     Active Substance: POTASSIUM CHLORIDE
     Indication: Product used for unknown indication
     Dosage: 20 MILLIGRAM, EVERY 12 HRS
     Route: 065
  4. POTASSIUM CHLORIDE [Interacting]
     Active Substance: POTASSIUM CHLORIDE
     Dosage: 20 MILLIGRAM, EVERY 12 HRS
     Route: 065
  5. POTASSIUM CHLORIDE [Interacting]
     Active Substance: POTASSIUM CHLORIDE
     Dosage: 391 MILLIGRAM, PER TWO DAYS (TABLETS)
     Route: 065
  6. POTASSIUM CHLORIDE [Interacting]
     Active Substance: POTASSIUM CHLORIDE
     Dosage: UNK
     Route: 065
  7. POTASSIUM CHLORIDE [Interacting]
     Active Substance: POTASSIUM CHLORIDE
     Dosage: 391 MILLIGRAM, PER TWO DAYS (TABLET)
     Route: 048
  8. POTASSIUM CHLORIDE [Interacting]
     Active Substance: POTASSIUM CHLORIDE
     Dosage: 1 DOSAGE FORM, QOD (TABLET)
     Route: 048
  9. POTASSIUM CHLORIDE [Interacting]
     Active Substance: POTASSIUM CHLORIDE
     Dosage: 1 DOSAGE FORM; PER 2 DAYS
     Route: 065
  10. POTASSIUM CHLORIDE [Interacting]
     Active Substance: POTASSIUM CHLORIDE
     Dosage: 391 MILLIGRAM, EVERY 12 HRS (TABLETS)
     Route: 048
  11. POTASSIUM CHLORIDE [Interacting]
     Active Substance: POTASSIUM CHLORIDE
     Dosage: 391 MILLIGRAM
     Route: 065
  12. POTASSIUM CHLORIDE [Interacting]
     Active Substance: POTASSIUM CHLORIDE
     Dosage: UNK
     Route: 065
  13. ZOLPIDEM [Interacting]
     Active Substance: ZOLPIDEM TARTRATE
     Indication: Depression
     Dosage: UNK, 24 HOURS
     Route: 065
  14. ZOLPIDEM [Interacting]
     Active Substance: ZOLPIDEM TARTRATE
     Dosage: 100 MILLIGRAM, 24 HOURS
     Route: 065
  15. ZOLPIDEM [Interacting]
     Active Substance: ZOLPIDEM TARTRATE
     Dosage: UNK, EVERY 12 HRS
     Route: 065
  16. ZOLPIDEM [Interacting]
     Active Substance: ZOLPIDEM TARTRATE
     Dosage: UNK, EVERY 12 HRS
     Route: 065
  17. ZOLPIDEM [Interacting]
     Active Substance: ZOLPIDEM TARTRATE
     Dosage: 10 MILLIGRAM PER DAY
     Route: 065
  18. ZOLPIDEM [Interacting]
     Active Substance: ZOLPIDEM TARTRATE
     Dosage: 10 MILLIGRAM PER DAY (0-0-1)
     Route: 065
  19. ZOLPIDEM [Interacting]
     Active Substance: ZOLPIDEM TARTRATE
     Dosage: 1 DOSAGE FORM PER DAY
     Route: 065
  20. ZOLPIDEM [Interacting]
     Active Substance: ZOLPIDEM TARTRATE
     Dosage: 10 MILLIGRAM, QD (0-0-1)
     Route: 065
  21. ZOLPIDEM [Interacting]
     Active Substance: ZOLPIDEM TARTRATE
     Dosage: 100 MILLIGRAM PER DAY
     Route: 065
  22. ZOLPIDEM [Interacting]
     Active Substance: ZOLPIDEM TARTRATE
     Dosage: UNK, 0-0-1
     Route: 065
  23. ZOLPIDEM [Interacting]
     Active Substance: ZOLPIDEM TARTRATE
     Dosage: 10 MILLIGRAM PER DAY
     Route: 065
  24. ZOLPIDEM [Interacting]
     Active Substance: ZOLPIDEM TARTRATE
     Dosage: 10 MILLIGRAM PER DAY
     Route: 048
  25. ALPRAZOLAM [Interacting]
     Active Substance: ALPRAZOLAM
     Indication: Depression
     Dosage: 0.5 MILLIGRAM, BID (TABLET)
     Route: 065
  26. ALPRAZOLAM [Interacting]
     Active Substance: ALPRAZOLAM
     Dosage: UNK, DAILY (TABLET)
     Route: 065
  27. ALPRAZOLAM [Interacting]
     Active Substance: ALPRAZOLAM
     Dosage: UNK, EVERY 12 HRS (TABLET)
     Route: 065
  28. ALPRAZOLAM [Interacting]
     Active Substance: ALPRAZOLAM
     Dosage: 0.5 MILLIGRAM, EVERY 12 HRS (TABLET)
     Route: 005
  29. ALPRAZOLAM [Interacting]
     Active Substance: ALPRAZOLAM
     Dosage: 2 DOSAGE FORM PER DAY (TABLET)
     Route: 065
  30. ALPRAZOLAM [Interacting]
     Active Substance: ALPRAZOLAM
     Dosage: 0.5 MILLIGRAM 24 HRS (TABLET)
     Route: 048
  31. ALPRAZOLAM [Interacting]
     Active Substance: ALPRAZOLAM
     Dosage: UNK, EVERY 12 HRS
     Route: 065
  32. ALPRAZOLAM [Interacting]
     Active Substance: ALPRAZOLAM
     Dosage: 0.5 MILLIGRAM; INTERMITTENTLY, ON AVERAGE 2 TIMES/24 H
     Route: 065
  33. ALPRAZOLAM [Interacting]
     Active Substance: ALPRAZOLAM
     Dosage: 2 DOSAGE FORM; PER DAY (ADHOC USUALLY), TABLET
     Route: 065
  34. ALPRAZOLAM [Interacting]
     Active Substance: ALPRAZOLAM
     Dosage: UNK, PER 24 HR
     Route: 065
  35. ALPRAZOLAM [Interacting]
     Active Substance: ALPRAZOLAM
     Dosage: 1  DOSAGE FORM PER DAY (TABLET)
     Route: 065
  36. ALPRAZOLAM [Interacting]
     Active Substance: ALPRAZOLAM
     Dosage: 0.5 MILLIGRAM PER DAY (TABLET)
     Route: 048
  37. ISOSORBIDE MONONITRATE [Interacting]
     Active Substance: ISOSORBIDE MONONITRATE
     Indication: Product used for unknown indication
     Dosage: 50 MILLIGRAM, INTERMITTENTLY ON AVERAGE 1-2 TIMES/24H
     Route: 065
  38. ISOSORBIDE MONONITRATE [Interacting]
     Active Substance: ISOSORBIDE MONONITRATE
     Dosage: 50 MILLIGRAM PER 24 HRS, USUALLY, 1-2 TABLETS A DAY
     Route: 065
  39. ISOSORBIDE MONONITRATE [Interacting]
     Active Substance: ISOSORBIDE MONONITRATE
     Dosage: UNK, EVERY 12 HRS
     Route: 065
  40. ISOSORBIDE MONONITRATE [Interacting]
     Active Substance: ISOSORBIDE MONONITRATE
     Dosage: 50 MILLIGRAM, QD; EVERY 24 HRS; ON DEMAND, TYPICALLY 1-2 X/24 H
     Route: 065
  41. ISOSORBIDE MONONITRATE [Interacting]
     Active Substance: ISOSORBIDE MONONITRATE
     Dosage: 100 MILLIGRAM PER DAY ( AS NEEDED, AV. ONCE/TWICE, DAILY )
  42. FUROSEMIDE [Interacting]
     Active Substance: FUROSEMIDE
     Indication: Product used for unknown indication
     Dosage: 120 MILLIGRAM (40 MILLIGRAM,3 TABLETS EVERY 2ND DAY)
     Route: 065
  43. FUROSEMIDE [Interacting]
     Active Substance: FUROSEMIDE
     Dosage: UNK; (TABLET)
     Route: 065
  44. FUROSEMIDE [Interacting]
     Active Substance: FUROSEMIDE
     Dosage: 3 DOSAGE FORM (3 TABLETS EVERY 2ND DAY). 120 MG
     Route: 065
  45. FUROSEMIDE [Interacting]
     Active Substance: FUROSEMIDE
     Dosage: UNK UNK, EVERY 12 HRS (TABLET)
     Route: 065
  46. FUROSEMIDE [Interacting]
     Active Substance: FUROSEMIDE
     Dosage: 3 DOSAGE FORM (3 TABLETS EVERY 2ND DAY)
     Route: 048
  47. FUROSEMIDE [Interacting]
     Active Substance: FUROSEMIDE
     Dosage: UNK UNK, EVERY 12 HRS (TABLET)
     Route: 065
  48. FUROSEMIDE [Interacting]
     Active Substance: FUROSEMIDE
     Dosage: 40 MILLIGRAM PER DAY
     Route: 065
  49. FUROSEMIDE [Interacting]
     Active Substance: FUROSEMIDE
     Dosage: UNK
     Route: 065
  50. TRAMADOL [Interacting]
     Active Substance: TRAMADOL\TRAMADOL HYDROCHLORIDE
     Indication: Pain
     Dosage: 2 DOSAGE FORM, UNK
     Route: 065
  51. TRAMADOL [Interacting]
     Active Substance: TRAMADOL\TRAMADOL HYDROCHLORIDE
     Dosage: 20 MILLIGRAM, EVERY 12 HRS (TABLET)
     Route: 065
  52. TRAMADOL [Interacting]
     Active Substance: TRAMADOL\TRAMADOL HYDROCHLORIDE
     Dosage: 100 MILLIGRAM, EVERY 12 HRS (TABLET)
     Route: 065
  53. TRAMADOL [Interacting]
     Active Substance: TRAMADOL\TRAMADOL HYDROCHLORIDE
     Dosage: 20 MILLIGRAM, EVERY 12 HRS (TABLET)
     Route: 065
  54. TRAMADOL [Interacting]
     Active Substance: TRAMADOL\TRAMADOL HYDROCHLORIDE
     Dosage: 50 MILLIGRAM; UNK (TABLET)
     Route: 065
  55. TRAMADOL [Interacting]
     Active Substance: TRAMADOL\TRAMADOL HYDROCHLORIDE
     Dosage: 200 MILLIGRAM,INTERMITTENTLY, UNK (TABLET)
     Route: 065
  56. TRAMADOL [Interacting]
     Active Substance: TRAMADOL\TRAMADOL HYDROCHLORIDE
     Dosage: UNK
     Route: 065
  57. TRAMADOL [Interacting]
     Active Substance: TRAMADOL\TRAMADOL HYDROCHLORIDE
     Dosage: 2 DOSAGE FORM, PRN (TABLET)
     Route: 048
  58. TRAMADOL [Interacting]
     Active Substance: TRAMADOL\TRAMADOL HYDROCHLORIDE
     Dosage: 100 MILLIGRAM, PRN ( 2TABLET)
     Route: 065
  59. TRAMADOL [Interacting]
     Active Substance: TRAMADOL\TRAMADOL HYDROCHLORIDE
     Dosage: UNK
     Route: 065
  60. HYDROXYZINE HYDROCHLORIDE [Interacting]
     Active Substance: HYDROXYZINE HYDROCHLORIDE
     Indication: Product used for unknown indication
     Dosage: 25 MILLIGRAM, (ADHOC USUALLY) UNK (COATED TABLET)
     Route: 065
  61. HYDROXYZINE HYDROCHLORIDE [Interacting]
     Active Substance: HYDROXYZINE HYDROCHLORIDE
     Dosage: UNK, EVERY 24 HR (COATED TABLET)
     Route: 065
  62. HYDROXYZINE HYDROCHLORIDE [Interacting]
     Active Substance: HYDROXYZINE HYDROCHLORIDE
     Dosage: 40 MILLIGRAM, UNK (COATED TABLET)
     Route: 065
  63. HYDROXYZINE HYDROCHLORIDE [Interacting]
     Active Substance: HYDROXYZINE HYDROCHLORIDE
     Dosage: 25 MILLIGRAM, EVERY 12 HRS (DOSAGE SCHEDULE: ON DEMAND, ON AVERAGE 2 TIMES/24H)
     Route: 065
  64. HYDROXYZINE HYDROCHLORIDE [Interacting]
     Active Substance: HYDROXYZINE HYDROCHLORIDE
     Dosage: UNK
     Route: 065
  65. HYDROXYZINE HYDROCHLORIDE [Interacting]
     Active Substance: HYDROXYZINE HYDROCHLORIDE
     Dosage: 25 MILLIGRAM, PRN
     Route: 065
  66. HYDROXYZINE HYDROCHLORIDE [Interacting]
     Active Substance: HYDROXYZINE HYDROCHLORIDE
     Dosage: 1 DOSAGE FORM
     Route: 065
  67. HYDROXYZINE HYDROCHLORIDE [Interacting]
     Active Substance: HYDROXYZINE HYDROCHLORIDE
     Dosage: 2 DOSAGE FORM, QD, 2 IOU
     Route: 065
  68. METOCLOPRAMIDE [Interacting]
     Active Substance: METOCLOPRAMIDE
     Indication: Constipation
     Dosage: 10 MILLIGRAM, PRN (IN CASE OF CONSTIPATION 2 TABLETS, BUT FOR MANY MONTHS) TABLET
     Route: 065
  69. METOCLOPRAMIDE [Interacting]
     Active Substance: METOCLOPRAMIDE
     Dosage: 20 MILLIGRAM (INTERMITTENTLY IN CASE OF CONSTIPATION FOR MANY MONTHS) TABLET
     Route: 065
  70. METOCLOPRAMIDE [Interacting]
     Active Substance: METOCLOPRAMIDE
     Dosage: 2 DOSAGE FORM, PRN; TABLET
     Route: 048
  71. METOCLOPRAMIDE [Interacting]
     Active Substance: METOCLOPRAMIDE
     Dosage: 2 DOSAGE FORM, PRN; TABLET
     Route: 065
  72. METOCLOPRAMIDE [Interacting]
     Active Substance: METOCLOPRAMIDE
     Dosage: 10 MILLIGRAM, PRN; TABLET
     Route: 065
  73. METOCLOPRAMIDE [Interacting]
     Active Substance: METOCLOPRAMIDE
     Dosage: 2 DOSAGE FORM; ON DEMAND IN THE EVENT OF CONSTIPATION (2 TABLETS), BUT FOR MANY MONTHS (TABLET)
     Route: 065
  74. METOCLOPRAMIDE [Interacting]
     Active Substance: METOCLOPRAMIDE
     Dosage: UNK
     Route: 065
  75. TORSEMIDE [Interacting]
     Active Substance: TORSEMIDE
     Indication: Product used for unknown indication
     Dosage: UNK
     Route: 065
  76. TORSEMIDE [Interacting]
     Active Substance: TORSEMIDE
     Dosage: UNK
     Route: 065
  77. TORSEMIDE [Interacting]
     Active Substance: TORSEMIDE
     Dosage: UNK
     Route: 048
  78. TORSEMIDE [Interacting]
     Active Substance: TORSEMIDE
     Dosage: 5 MILLIGRAM, QD (1-0-0)
     Route: 065
  79. ALLOPURINOL [Interacting]
     Active Substance: ALLOPURINOL
     Indication: Product used for unknown indication
     Dosage: 100 MILLIGRAM, EVERY MORNING
     Route: 065
  80. ALLOPURINOL [Interacting]
     Active Substance: ALLOPURINOL
     Dosage: UNK, EVERY 12 HRS
     Route: 065
  81. ALLOPURINOL [Interacting]
     Active Substance: ALLOPURINOL
     Dosage: UNK, EVERY 12 HRS
     Route: 065
  82. ALLOPURINOL [Interacting]
     Active Substance: ALLOPURINOL
     Dosage: 100 MILLIGRAM PER DAY
     Route: 048
  83. ALLOPURINOL [Interacting]
     Active Substance: ALLOPURINOL
     Dosage: 100 MILLIGRAM, QD (1-0-0), TABLET
     Route: 065
  84. ALLOPURINOL [Interacting]
     Active Substance: ALLOPURINOL
     Dosage: 1 DOSAGE FORM PER DAY
     Route: 065
  85. ALLOPURINOL [Interacting]
     Active Substance: ALLOPURINOL
     Dosage: UNK, EVERY 12 HRS
     Route: 065
  86. ALLOPURINOL [Interacting]
     Active Substance: ALLOPURINOL
     Dosage: 50 MILLIGRAM, PER DAY
     Route: 048
  87. ALLOPURINOL [Interacting]
     Active Substance: ALLOPURINOL
     Dosage: 100 MILLIGRAM PER 24 HRS
     Route: 065
  88. METFORMIN [Interacting]
     Active Substance: METFORMIN HYDROCHLORIDE
     Indication: Type 2 diabetes mellitus
     Dosage: UNK
     Route: 065
  89. METFORMIN [Interacting]
     Active Substance: METFORMIN HYDROCHLORIDE
     Dosage: UNK
     Route: 065
  90. METFORMIN [Interacting]
     Active Substance: METFORMIN HYDROCHLORIDE
     Dosage: UNK
     Route: 048
  91. METFORMIN [Interacting]
     Active Substance: METFORMIN HYDROCHLORIDE
     Dosage: UNK
     Route: 065
  92. OMEPRAZOLE [Interacting]
     Active Substance: OMEPRAZOLE
     Indication: Product used for unknown indication
     Dosage: 20 MILLIGRAM, BID (1-1-0)
     Route: 065
  93. OMEPRAZOLE [Interacting]
     Active Substance: OMEPRAZOLE
     Dosage: UNK, EVERY 12 HRS (1-1-0)
     Route: 065
  94. OMEPRAZOLE [Interacting]
     Active Substance: OMEPRAZOLE
     Dosage: 20 MILLIGRAM, BID
     Route: 065
  95. OMEPRAZOLE [Interacting]
     Active Substance: OMEPRAZOLE
     Dosage: 40 MILLIGRAM PER DAY
     Route: 065
  96. OMEPRAZOLE [Interacting]
     Active Substance: OMEPRAZOLE
     Dosage: 100 MILLIGRAM, EVERY 12 HRS
     Route: 065
  97. OMEPRAZOLE [Interacting]
     Active Substance: OMEPRAZOLE
     Dosage: 40 MILLIGRAM, QD
     Route: 048
  98. OMEPRAZOLE [Interacting]
     Active Substance: OMEPRAZOLE
     Dosage: 200 MILLIGRAM PER DAY
     Route: 065
  99. GLICLAZIDE [Interacting]
     Active Substance: GLICLAZIDE
     Indication: Type 2 diabetes mellitus
     Dosage: 60 MILLIGRAM, EVERY 8 HOURS (1-1-1)
     Route: 065
  100. GLICLAZIDE [Interacting]
     Active Substance: GLICLAZIDE
     Dosage: 60 MILLIGRAM, EVERY 8 HOURS (1-1-1), MODIFIED-RELEASE TABLET
     Route: 065
  101. GLICLAZIDE [Interacting]
     Active Substance: GLICLAZIDE
     Dosage: UNK
     Route: 065
  102. DEXTROSE\NIKETHAMIDE [Interacting]
     Active Substance: DEXTROSE\NIKETHAMIDE
     Indication: Product used for unknown indication
     Dosage: 20 MILLIGRAM, EVERY 12 HRS
     Route: 065
  103. DEXTROSE\NIKETHAMIDE [Interacting]
     Active Substance: DEXTROSE\NIKETHAMIDE
     Dosage: UNK, PRN, 1.5 MG/125 MG, AS NEEDED
     Route: 065
  104. DEXTROSE\NIKETHAMIDE [Interacting]
     Active Substance: DEXTROSE\NIKETHAMIDE
     Dosage: 20 MILLIGRAM, EVERY 12 HRS
     Route: 065
  105. DEXTROSE\NIKETHAMIDE [Interacting]
     Active Substance: DEXTROSE\NIKETHAMIDE
     Dosage: UNK
     Route: 065
  106. DEXTROSE\NIKETHAMIDE [Interacting]
     Active Substance: DEXTROSE\NIKETHAMIDE
     Dosage: UNK, PRN
     Route: 065
  107. DEXTROSE\NIKETHAMIDE [Interacting]
     Active Substance: DEXTROSE\NIKETHAMIDE
     Dosage: UNK, PRN
     Route: 065
  108. DEXTROSE\NIKETHAMIDE [Interacting]
     Active Substance: DEXTROSE\NIKETHAMIDE
     Dosage: 1.5 MILLIGRAM (INTERMITTENTLY)
     Route: 065
  109. DEXTROSE\NIKETHAMIDE [Interacting]
     Active Substance: DEXTROSE\NIKETHAMIDE
     Dosage: 20 MG
     Route: 065
  110. DEXTROSE\NIKETHAMIDE [Interacting]
     Active Substance: DEXTROSE\NIKETHAMIDE
     Dosage: 1.5 MILLIGRAM (INTERMITTENTLY)
     Route: 065
  111. DEXTROSE\NIKETHAMIDE [Interacting]
     Active Substance: DEXTROSE\NIKETHAMIDE
     Dosage: 1,5 + 125 MG ON DEMAND
     Route: 065
  112. DEXTROSE\NIKETHAMIDE [Interacting]
     Active Substance: DEXTROSE\NIKETHAMIDE
     Dosage: 1,5 + 125 MG ON DEMAND
     Route: 065
  113. DEXTROSE\NIKETHAMIDE [Interacting]
     Active Substance: DEXTROSE\NIKETHAMIDE
     Dosage: 20 MG
     Route: 065
  114. DEXTROSE\NIKETHAMIDE [Interacting]
     Active Substance: DEXTROSE\NIKETHAMIDE
     Dosage: 1.5 MILLIGRAM (INTERMITTENTLY)
     Route: 065
  115. DEXTROSE\NIKETHAMIDE [Interacting]
     Active Substance: DEXTROSE\NIKETHAMIDE
     Dosage: UNK, PRN
     Route: 065
  116. DEXTROSE\NIKETHAMIDE [Interacting]
     Active Substance: DEXTROSE\NIKETHAMIDE
     Dosage: 1,5 + 125 MG ON DEMAND
     Route: 065
  117. LEVOTHYROXINE [Interacting]
     Active Substance: LEVOTHYROXINE\LEVOTHYROXINE SODIUM
     Indication: Product used for unknown indication
     Dosage: 25 MILLIGRAM PER 24 HR
     Route: 065
  118. LEVOTHYROXINE [Interacting]
     Active Substance: LEVOTHYROXINE\LEVOTHYROXINE SODIUM
     Dosage: 20 MILLIGRAM, EVERY 12 HRS
     Route: 048
  119. LEVOTHYROXINE [Interacting]
     Active Substance: LEVOTHYROXINE\LEVOTHYROXINE SODIUM
     Dosage: 20 MILLIGRAM, EVERY 12 HRS
     Route: 048
  120. LEVOTHYROXINE [Interacting]
     Active Substance: LEVOTHYROXINE\LEVOTHYROXINE SODIUM
     Dosage: 100 MICROGRAM PER 24 HR (1-10-0 AT LEAST FOR 2 YEARS )
     Route: 065
  121. LEVOTHYROXINE [Interacting]
     Active Substance: LEVOTHYROXINE\LEVOTHYROXINE SODIUM
     Dosage: 100 MICROGRAM, QD (PER DAY (1-0-0; AT LEAST FOR 2 YEARS)
     Route: 005
  122. LEVOTHYROXINE [Interacting]
     Active Substance: LEVOTHYROXINE\LEVOTHYROXINE SODIUM
     Dosage: 1-0-0
     Route: 065
  123. CHOLECALCIFEROL [Interacting]
     Active Substance: CHOLECALCIFEROL
     Indication: Product used for unknown indication
     Dosage: 1 DOSAGE FORM, QD (1-0-0)
     Route: 065
  124. CHOLECALCIFEROL [Interacting]
     Active Substance: CHOLECALCIFEROL
     Dosage: UNK, PER 24 HOUR
     Route: 065
  125. CHOLECALCIFEROL [Interacting]
     Active Substance: CHOLECALCIFEROL
     Dosage: 1 DOSAGE FORM PER DAY
     Route: 065
  126. RAMIPRIL [Interacting]
     Active Substance: RAMIPRIL
     Indication: Cardiac failure
     Dosage: 5 MILLIGRAM, EVERY 24 HRS
     Route: 048
  127. RAMIPRIL [Interacting]
     Active Substance: RAMIPRIL
     Dosage: 5 MILLIGRAM PER DAY, 1-0-0, AT LEAST FOR 2 YEARS
     Route: 065
  128. RAMIPRIL [Interacting]
     Active Substance: RAMIPRIL
     Dosage: 50 MILLIGRAM, EVERY 12 HRS
     Route: 065
  129. RAMIPRIL [Interacting]
     Active Substance: RAMIPRIL
     Dosage: 1 DOSAGE FORM; PER DAY
     Route: 065
  130. RAMIPRIL [Interacting]
     Active Substance: RAMIPRIL
     Dosage: 5 MILLIGRAM, QD, IN THE MORNING
     Route: 065
  131. RAMIPRIL [Interacting]
     Active Substance: RAMIPRIL
     Dosage: 1 IOU
     Route: 065
  132. RAMIPRIL [Interacting]
     Active Substance: RAMIPRIL
     Dosage: 50 MG
     Route: 065
  133. RAMIPRIL [Interacting]
     Active Substance: RAMIPRIL
     Dosage: 1 IOU
     Route: 065
  134. RAMIPRIL [Interacting]
     Active Substance: RAMIPRIL
     Dosage: (1-0-0, ATLEAST FOR 2 YEARS)
  135. ACETAMINOPHEN [Interacting]
     Active Substance: ACETAMINOPHEN
     Indication: Product used for unknown indication
     Dosage: 20 MILLIGRAM, EVERY 12 HRS
     Route: 065
  136. ACETAMINOPHEN [Interacting]
     Active Substance: ACETAMINOPHEN
     Dosage: 500 MILLIGRAM, EVERY 12 HRS
     Route: 065
  137. ACETAMINOPHEN [Interacting]
     Active Substance: ACETAMINOPHEN
     Dosage: 500 MILLIGRAM, QD, PER DAY
     Route: 065
  138. ACETAMINOPHEN [Interacting]
     Active Substance: ACETAMINOPHEN
     Dosage: 20 MILLIGRAM, EVERY 12 HRS
     Route: 065
  139. ACETAMINOPHEN [Interacting]
     Active Substance: ACETAMINOPHEN
     Dosage: 500 MILLIGRAM, AT BED TIME (0-0-1)
     Route: 065
  140. ACETAMINOPHEN [Interacting]
     Active Substance: ACETAMINOPHEN
     Dosage: 250 MILLIGRAM, BID (1-0-1)
     Route: 065
  141. ACETAMINOPHEN [Interacting]
     Active Substance: ACETAMINOPHEN
     Dosage: 1000 MILLIGRAM PER DAY
     Route: 065
  142. ACETAMINOPHEN [Interacting]
     Active Substance: ACETAMINOPHEN
     Dosage: 1 IOU
     Route: 065
  143. ACETAMINOPHEN [Interacting]
     Active Substance: ACETAMINOPHEN
     Dosage: 1000 MG
     Route: 065
  144. ACETAMINOPHEN [Interacting]
     Active Substance: ACETAMINOPHEN
     Dosage: (0.5 DAY) 1-0-1
     Route: 065
  145. ACETAMINOPHEN [Interacting]
     Active Substance: ACETAMINOPHEN
     Dosage: 0-0-1
  146. HYDROCHLOROTHIAZIDE [Interacting]
     Active Substance: HYDROCHLOROTHIAZIDE
     Indication: Product used for unknown indication
     Dosage: 25 MILLIGRAM, QD (1-0-0)
     Route: 065
  147. HYDROCHLOROTHIAZIDE [Interacting]
     Active Substance: HYDROCHLOROTHIAZIDE
     Indication: Product used for unknown indication
     Dosage: UNK, EVERY 24 HR
     Route: 065
  148. HYDROCHLOROTHIAZIDE [Interacting]
     Active Substance: HYDROCHLOROTHIAZIDE
     Dosage: 25 MILLIGRAM PER 24 HR
     Route: 065
  149. HYDROCHLOROTHIAZIDE [Interacting]
     Active Substance: HYDROCHLOROTHIAZIDE
     Dosage: UNK, EVERY 12 HRS
     Route: 065
  150. HYDROCHLOROTHIAZIDE [Interacting]
     Active Substance: HYDROCHLOROTHIAZIDE
     Dosage: UNK, EVERY 12 HRS
     Route: 065
  151. HYDROCHLOROTHIAZIDE [Interacting]
     Active Substance: HYDROCHLOROTHIAZIDE
     Dosage: 25 MILLIGRAM; PER DAY
     Route: 048
  152. HYDROCHLOROTHIAZIDE [Interacting]
     Active Substance: HYDROCHLOROTHIAZIDE
     Dosage: UNK, EVERY 12 HRS
     Route: 065
  153. HYDROCHLOROTHIAZIDE [Interacting]
     Active Substance: HYDROCHLOROTHIAZIDE
     Dosage: 1 DOSAGE FORM ( 12 HOUR)
     Route: 065
  154. HYDROCHLOROTHIAZIDE [Interacting]
     Active Substance: HYDROCHLOROTHIAZIDE
     Dosage: BID
     Route: 065
  155. HYDROCHLOROTHIAZIDE [Interacting]
     Active Substance: HYDROCHLOROTHIAZIDE
     Dosage: 1-0-0
  156. HYDROCHLOROTHIAZIDE [Interacting]
     Active Substance: HYDROCHLOROTHIAZIDE
     Dosage: BID
     Route: 065
  157. HYDROCHLOROTHIAZIDE [Interacting]
     Active Substance: HYDROCHLOROTHIAZIDE
     Dosage: 1 IOU
     Route: 065
  158. HYDROCHLOROTHIAZIDE [Interacting]
     Active Substance: HYDROCHLOROTHIAZIDE
     Dosage: QD
     Route: 065
  159. HYDROCHLOROTHIAZIDE [Interacting]
     Active Substance: HYDROCHLOROTHIAZIDE
     Dosage: BID
     Route: 065
  160. HYDROCHLOROTHIAZIDE [Interacting]
     Active Substance: HYDROCHLOROTHIAZIDE
     Dosage: 1-0-0
     Route: 065
  161. HYDROCHLOROTHIAZIDE [Interacting]
     Active Substance: HYDROCHLOROTHIAZIDE
     Dosage: QD
     Route: 065
  162. HYDROCHLOROTHIAZIDE [Interacting]
     Active Substance: HYDROCHLOROTHIAZIDE
     Dosage: QD
     Route: 065
  163. ATORVASTATIN [Interacting]
     Active Substance: ATORVASTATIN
     Indication: Product used for unknown indication
     Dosage: 20 MILLIGRAM, AT BED TIME (0-0-1)
     Route: 048
  164. ATORVASTATIN [Interacting]
     Active Substance: ATORVASTATIN
     Dosage: 20 MILLIGRAM, AT BED TIME (0-0-1)
     Route: 065
  165. ATORVASTATIN [Interacting]
     Active Substance: ATORVASTATIN
     Dosage: 1 DOSAGE FORM PER DAY
     Route: 065
  166. ATORVASTATIN [Interacting]
     Active Substance: ATORVASTATIN
     Dosage: 20 MILLIGRAM, QD (20 MG, 1X PER DAY, IN THE EVENING)
     Route: 065
  167. ATORVASTATIN [Interacting]
     Active Substance: ATORVASTATIN
     Dosage: 0-0-1
  168. ATORVASTATIN [Interacting]
     Active Substance: ATORVASTATIN
     Dosage: 1 IOU
     Route: 065
  169. ATORVASTATIN [Interacting]
     Active Substance: ATORVASTATIN
     Dosage: 0-0-1; UNKNOWN
     Route: 065
  170. ATORVASTATIN [Interacting]
     Active Substance: ATORVASTATIN
     Dosage: 0-0-1; UNKNOWN
     Route: 065
  171. ATORVASTATIN [Interacting]
     Active Substance: ATORVASTATIN
     Dosage: 0-0-1; UNKNOWN
     Route: 065
  172. ATORVASTATIN [Interacting]
     Active Substance: ATORVASTATIN
     Dosage: 0-0-1
     Route: 065
  173. ATORVASTATIN [Interacting]
     Active Substance: ATORVASTATIN
     Dosage: 1 DF, QD
     Route: 065
  174. ALBUTEROL [Interacting]
     Active Substance: ALBUTEROL
     Indication: Product used for unknown indication
     Dosage: 100 MICROGRAM, UNK, INTERMITTANTLY
     Route: 065
  175. ALBUTEROL [Interacting]
     Active Substance: ALBUTEROL
     Dosage: 100 MICROGRAM, PRN
     Route: 065
  176. ALBUTEROL [Interacting]
     Active Substance: ALBUTEROL
     Dosage: 100 MICROGRAM, UNK
     Route: 048
  177. ALBUTEROL [Interacting]
     Active Substance: ALBUTEROL
     Dosage: 100 MICROGRAM; ON DEMAND
     Route: 065
  178. ALBUTEROL [Interacting]
     Active Substance: ALBUTEROL
     Dosage: 20 MILLIGRAM (12 HOUR)
     Route: 065
  179. ALBUTEROL [Interacting]
     Active Substance: ALBUTEROL
     Dosage: UNK
     Route: 065
  180. ALBUTEROL [Interacting]
     Active Substance: ALBUTEROL
     Dosage: ON DEMAND, INTERMITTENTLY, PRN
     Route: 065
  181. ALBUTEROL [Interacting]
     Active Substance: ALBUTEROL
     Dosage: 20 MG
     Route: 065
  182. ALBUTEROL [Interacting]
     Active Substance: ALBUTEROL
     Dosage: 100 ?G
  183. BETAHISTINE HYDROCHLORIDE [Interacting]
     Active Substance: BETAHISTINE HYDROCHLORIDE
     Indication: Dizziness
     Dosage: 24 MILLIGRAM, EVERY 24 HRS (0-1-0)
     Route: 065
  184. BETAHISTINE HYDROCHLORIDE [Interacting]
     Active Substance: BETAHISTINE HYDROCHLORIDE
     Dosage: 24 MILLIGRAM PER DAY
     Route: 065
  185. BETAHISTINE HYDROCHLORIDE [Interacting]
     Active Substance: BETAHISTINE HYDROCHLORIDE
     Dosage: 20 MILLIGRAM, EVERY 12 HRS
     Route: 065
  186. BETAHISTINE HYDROCHLORIDE [Interacting]
     Active Substance: BETAHISTINE HYDROCHLORIDE
     Dosage: 20 MILLIGRAM, EVERY 12 HRS
     Route: 065
  187. BETAHISTINE HYDROCHLORIDE [Interacting]
     Active Substance: BETAHISTINE HYDROCHLORIDE
     Dosage: 24 MILLIGRAM, QD (0-1-0)
     Route: 048
  188. BETAHISTINE HYDROCHLORIDE [Interacting]
     Active Substance: BETAHISTINE HYDROCHLORIDE
     Dosage: 1024 MILLIGRAM PER DAY ( 24 HOUR)
     Route: 065
  189. QUETIAPINE [Interacting]
     Active Substance: QUETIAPINE
     Indication: Product used for unknown indication
     Dosage: 25 MILLIGRAM, QD
     Route: 065
  190. QUETIAPINE [Interacting]
     Active Substance: QUETIAPINE
     Dosage: UNK
     Route: 065
  191. NIKETHAMIDE [Interacting]
     Active Substance: NIKETHAMIDE
     Indication: Product used for unknown indication
     Dosage: 125 MILLIGRAM, UNK, INTERMITTENTLY
     Route: 065
  192. NIKETHAMIDE [Interacting]
     Active Substance: NIKETHAMIDE
     Dosage: 125 MILLIGRAM, UNK, INTERMITTENTLY
     Route: 065
  193. DABIGATRAN [Interacting]
     Active Substance: DABIGATRAN
     Indication: Product used for unknown indication
     Dosage: 110 MILLIGRAM, BID (1-0-1; AT LEAST FOR 2 YEARS)
     Route: 065
  194. DABIGATRAN [Interacting]
     Active Substance: DABIGATRAN
     Dosage: 110 MILLIGRAM, BID
     Route: 065
  195. DABIGATRAN [Interacting]
     Active Substance: DABIGATRAN
     Dosage: 20 MILLIGRAM, EVERY 12 HRS
     Route: 065
  196. DABIGATRAN [Interacting]
     Active Substance: DABIGATRAN
     Dosage: 20 MILLIGRAM, EVERY 12 HRS
     Route: 065
  197. DABIGATRAN [Interacting]
     Active Substance: DABIGATRAN
     Dosage: 20 MILLIGRAM; PER DAY
     Route: 048
  198. DABIGATRAN [Interacting]
     Active Substance: DABIGATRAN
     Dosage: UNK; PER DAY
     Route: 048
  199. DABIGATRAN [Interacting]
     Active Substance: DABIGATRAN
     Dosage: UNK
     Route: 065
  200. DABIGATRAN [Interacting]
     Active Substance: DABIGATRAN
     Dosage: UNK, BID (1-0-1)
     Route: 048
  201. DABIGATRAN [Interacting]
     Active Substance: DABIGATRAN
     Dosage: 110 MILLIGRAM, EVERY 12 HRS  1-0-1(0.5 DAY)
     Route: 065
  202. CITALOPRAM [Interacting]
     Active Substance: CITALOPRAM HYDROBROMIDE
     Indication: Depression
     Dosage: UNK
     Route: 065
  203. CITALOPRAM [Interacting]
     Active Substance: CITALOPRAM HYDROBROMIDE
     Dosage: 40 MILLIGRAM; EVERY MORNING (1-0-0)
     Route: 065
  204. CITALOPRAM [Interacting]
     Active Substance: CITALOPRAM HYDROBROMIDE
     Dosage: 40 MILLIGRAM PER DAY; EVERY MORNING (1-0-0), FILM-COATED TABLET
     Route: 048
  205. CITALOPRAM [Interacting]
     Active Substance: CITALOPRAM HYDROBROMIDE
     Dosage: 40 MILLIGRAM, AT BED TIME (0-0-1)
     Route: 065
  206. CITALOPRAM [Interacting]
     Active Substance: CITALOPRAM HYDROBROMIDE
     Dosage: 1 DOSAGE FORM, QD, 1 DOSAGE FORM PER DAY, 1-0-0, FIL COATED TABLET
     Route: 065
  207. CITALOPRAM [Interacting]
     Active Substance: CITALOPRAM HYDROBROMIDE
     Dosage: 1-0-0
     Route: 065
  208. CITALOPRAM [Interacting]
     Active Substance: CITALOPRAM HYDROBROMIDE
     Dosage: 0-0-1
  209. METOPROLOL [Interacting]
     Active Substance: METOPROLOL
     Indication: Hypertension
     Dosage: 50 MILLIGRAM, EVERY 12 HRS (DOSAGE SCHEDULE: 1-0-1)
     Route: 065
  210. METOPROLOL [Interacting]
     Active Substance: METOPROLOL
     Indication: Type 2 diabetes mellitus
     Dosage: UNK, EVERY 12 HRS (DOSAGE SCHEDULE: 1-0-1/2 (DOSE REDUCE))
     Route: 065
  211. METOPROLOL [Interacting]
     Active Substance: METOPROLOL
     Indication: Type 2 diabetes mellitus
     Dosage: 100 MILLIGRAM; GASTRO-RESISTANT COATED TABLET
     Route: 048
  212. METOPROLOL [Interacting]
     Active Substance: METOPROLOL
     Dosage: 50 MILLIGRAM; DOSAGE SCHEDULE: 1-0-1/2 (DOSE REDUCE);
     Route: 065
  213. METOPROLOL [Interacting]
     Active Substance: METOPROLOL
     Dosage: 50 MILLIGRAM; DOSAGE SCHEDULE: 1-0-1
     Route: 065
  214. METOPROLOL [Interacting]
     Active Substance: METOPROLOL
     Dosage: 2 DOSAGE FORM (TABLET)
     Route: 065
  215. METOPROLOL [Interacting]
     Active Substance: METOPROLOL
     Dosage: 20 DOSAGE FORM, PRN (TABLET)
     Route: 065
  216. METOPROLOL [Interacting]
     Active Substance: METOPROLOL
     Dosage: 20 DOSAGE FORM,  (TABLET)
     Route: 065
  217. METOPROLOL [Interacting]
     Active Substance: METOPROLOL
     Dosage: 10 MILLIGRAM (2 TABLETS AS NEEDED, IN CASE OF CONSTIPATION)
     Route: 065
  218. METOPROLOL [Interacting]
     Active Substance: METOPROLOL
     Dosage: 10 MILLIGRAM PER DAY
     Route: 065
  219. METOPROLOL [Interacting]
     Active Substance: METOPROLOL
     Dosage: 50 MG, BID/1-0-1/2
  220. METOPROLOL [Interacting]
     Active Substance: METOPROLOL
     Dosage: DOSAGE SCHEDULE: 1-0-1
     Route: 065
  221. METOPROLOL [Interacting]
     Active Substance: METOPROLOL
     Dosage: 1-0-1
     Route: 065
  222. METOPROLOL [Interacting]
     Active Substance: METOPROLOL
     Dosage: DOSAGE SCHEDULE: 1-0-1/2 (DOSE REDUCE); AT LEAST FOR 2 YEARS
     Route: 065
  223. SPIRONOLACTONE [Interacting]
     Active Substance: SPIRONOLACTONE
     Indication: Product used for unknown indication
     Dosage: 100 MILLIGRAM, QD, 1X PER DAY
     Route: 065
  224. SPIRONOLACTONE [Interacting]
     Active Substance: SPIRONOLACTONE
     Dosage: UNK, EVERY 12 HRS
     Route: 065
  225. SPIRONOLACTONE [Interacting]
     Active Substance: SPIRONOLACTONE
     Dosage: UNK, EVERY 12 HRS
     Route: 065
  226. SPIRONOLACTONE [Interacting]
     Active Substance: SPIRONOLACTONE
     Dosage: 100 MILLIGRAM PER DAY
     Route: 065
  227. SPIRONOLACTONE [Interacting]
     Active Substance: SPIRONOLACTONE
     Dosage: 100 MILLIGRAM PER DAY (0-1-0, AT LEAST FOR 2 YEARS)
     Route: 065
  228. SPIRONOLACTONE [Interacting]
     Active Substance: SPIRONOLACTONE
     Dosage: 100 MILLIGRAM PER DAY
     Route: 048
  229. SPIRONOLACTONE [Interacting]
     Active Substance: SPIRONOLACTONE
     Dosage: UNK, EVERY 12 HRS
     Route: 065
  230. SPIRONOLACTONE [Interacting]
     Active Substance: SPIRONOLACTONE
     Dosage: 100 MILLIGRAM; EVERY 24 HRS (0-1-0)
     Route: 065
  231. SPIRONOLACTONE [Interacting]
     Active Substance: SPIRONOLACTONE
     Dosage: 0-1-0
     Route: 065
  232. SPIRONOLACTONE [Interacting]
     Active Substance: SPIRONOLACTONE
     Dosage: 100 MG, QD/0-1-0
  233. BENSERAZIDE\LEVODOPA [Interacting]
     Active Substance: BENSERAZIDE\LEVODOPA
     Indication: Product used for unknown indication
     Dosage: 62.5 MILLIGRAM, EVERY 8 HRS
     Route: 065
  234. BENSERAZIDE\LEVODOPA [Interacting]
     Active Substance: BENSERAZIDE\LEVODOPA
     Dosage: 187.5 MILLIGRAM PER DAY
     Route: 065
  235. DENOSUMAB [Interacting]
     Active Substance: DENOSUMAB
     Indication: Product used for unknown indication
     Dosage: 60 MILLIGRAM, UNK
     Route: 065
  236. POTASSIUM CHLORIDE\RIBOFLAVIN 5^-PHOSPHATE SODIUM [Suspect]
     Active Substance: POTASSIUM CHLORIDE\RIBOFLAVIN 5^-PHOSPHATE SODIUM
     Indication: Product used for unknown indication
     Dosage: UNK
     Route: 065
  237. POTASSIUM CHLORIDE [Suspect]
     Active Substance: POTASSIUM CHLORIDE
     Indication: Product used for unknown indication
     Dosage: 2 DOSAGE FORMS DAILY; 1 TABLET (391 K PLUS) EVERY 2 DAYS (1 DOSAGE FORMS,1 IN 2 D)
     Route: 065
  238. TORSEMIDE [Suspect]
     Active Substance: TORSEMIDE
     Indication: Product used for unknown indication
     Dosage: 5 MILLIGRAM, QD
     Route: 065
  239. BETAHISTINE HYDROCHLORIDE [Interacting]
     Active Substance: BETAHISTINE HYDROCHLORIDE
     Indication: Product used for unknown indication
     Dosage: 24 MILLIGRAM, QD
     Route: 065
  240. HYDROXYZINE [Suspect]
     Active Substance: HYDROXYZINE HYDROCHLORIDE
     Indication: Product used for unknown indication
     Dosage: 40 MILLIGRAM, QD, 40 MG, QD/1-0-0/25 MG, AD HOC, USUALLY
     Route: 065
  241. GLICLAZIDE [Suspect]
     Active Substance: GLICLAZIDE
     Indication: Type 2 diabetes mellitus
     Dosage: 180 MILLIGRAM, QD
     Route: 065
  242. GLICLAZIDE [Suspect]
     Active Substance: GLICLAZIDE
     Dosage: (0.3 DAY) 1-1-1
     Route: 065
  243. GLICLAZIDE [Suspect]
     Active Substance: GLICLAZIDE
     Dosage: (0.3 DAY) 1-1-1
     Route: 065
  244. GLICLAZIDE [Suspect]
     Active Substance: GLICLAZIDE
     Dosage: 60 MG, TID/1-1-1
     Route: 065
  245. GLICLAZIDE [Suspect]
     Active Substance: GLICLAZIDE
     Dosage: 3 DOSAGE FORM, QD, 1-1-1 3 DOSAGE FORM, QD, 1-1-1
     Route: 065
  246. GLICLAZIDE [Suspect]
     Active Substance: GLICLAZIDE
     Dosage: (0.3 DAY) 1-1-1
     Route: 065
  247. OMEPRAZOLE [Interacting]
     Active Substance: OMEPRAZOLE
     Indication: Product used for unknown indication
     Dosage: 20 MILLIGRAM (1-1-0)
     Route: 065
  248. OMEPRAZOLE [Interacting]
     Active Substance: OMEPRAZOLE
     Dosage: 40 MILLIGRAM
     Route: 065
  249. OMEPRAZOLE [Interacting]
     Active Substance: OMEPRAZOLE
     Dosage: 100 MILLIGRAM (1-1-)0
     Route: 065
  250. OMEPRAZOLE [Interacting]
     Active Substance: OMEPRAZOLE
     Dosage: 200 MILLIGRAM
     Route: 065
  251. DABIGATRAN [Suspect]
     Active Substance: DABIGATRAN
     Indication: Product used for unknown indication
     Dosage: 110 MG, BID/DRUG LIST AFTER MODIFICATION
     Route: 065
  252. DABIGATRAN [Suspect]
     Active Substance: DABIGATRAN
     Dosage: 110 MG, BID/DRUG LIST AT THE ADMISSION
     Route: 065
  253. DABIGATRAN [Suspect]
     Active Substance: DABIGATRAN
     Dosage: 110 MG, BID/DRUG LIST AT THE ADMISSION
     Route: 065
  254. CITALOPRAM HYDROBROMIDE [Interacting]
     Active Substance: CITALOPRAM HYDROBROMIDE
     Indication: Product used for unknown indication
     Dosage: UNK
     Route: 065
  255. CITALOPRAM HYDROBROMIDE [Interacting]
     Active Substance: CITALOPRAM HYDROBROMIDE
     Dosage: UNK
     Route: 065
  256. CITALOPRAM HYDROBROMIDE [Interacting]
     Active Substance: CITALOPRAM HYDROBROMIDE
     Dosage: UNK
     Route: 065
  257. POTASSIUM CHLORIDE\RIBOFLAVIN 5^-PHOSPHATE SODIUM [Interacting]
     Active Substance: POTASSIUM CHLORIDE\RIBOFLAVIN 5^-PHOSPHATE SODIUM
     Indication: Product used for unknown indication
     Dosage: UNK
     Route: 065
  258. POTASSIUM CHLORIDE\RIBOFLAVIN 5^-PHOSPHATE SODIUM [Interacting]
     Active Substance: POTASSIUM CHLORIDE\RIBOFLAVIN 5^-PHOSPHATE SODIUM
     Dosage: UNK
     Route: 065
  259. POTASSIUM CHLORIDE\RIBOFLAVIN 5^-PHOSPHATE SODIUM [Interacting]
     Active Substance: POTASSIUM CHLORIDE\RIBOFLAVIN 5^-PHOSPHATE SODIUM
     Dosage: UNK
     Route: 065
  260. ISOSORBIDE MONONITRATE [Interacting]
     Active Substance: ISOSORBIDE MONONITRATE
     Indication: Product used for unknown indication
     Dosage: ADHOC, USUALLY,1-2 TABLETS A DAY
     Route: 065
  261. ISOSORBIDE MONONITRATE [Interacting]
     Active Substance: ISOSORBIDE MONONITRATE
     Dosage: BID
     Route: 065
  262. ISOSORBIDE MONONITRATE [Interacting]
     Active Substance: ISOSORBIDE MONONITRATE
     Dosage: ON DEMAND, TYPICALLY 1-2 X/24 H
     Route: 065
  263. ISOSORBIDE MONONITRATE [Interacting]
     Active Substance: ISOSORBIDE MONONITRATE
     Dosage: BID
     Route: 065
  264. ISOSORBIDE MONONITRATE [Interacting]
     Active Substance: ISOSORBIDE MONONITRATE
     Dosage: AS NEEDED, AV. ONCE/TWICE, DAILY
     Route: 065
  265. ISOSORBIDE MONONITRATE [Interacting]
     Active Substance: ISOSORBIDE MONONITRATE
     Dosage: BID
     Route: 065
  266. LEVOTHYROXINE SODIUM [Interacting]
     Active Substance: LEVOTHYROXINE SODIUM
     Indication: Product used for unknown indication
     Dosage: 100 MILLIGRAM (1-0-1)
     Route: 065
  267. DABIGATRAN ETEXILATE [Interacting]
     Active Substance: DABIGATRAN ETEXILATE
     Indication: Product used for unknown indication
     Dosage: UNK
     Route: 065
  268. DABIGATRAN ETEXILATE [Interacting]
     Active Substance: DABIGATRAN ETEXILATE
     Dosage: UNK
     Route: 065
  269. DABIGATRAN ETEXILATE [Interacting]
     Active Substance: DABIGATRAN ETEXILATE
     Dosage: UNK
     Route: 065
  270. BETAHISTINE HYDROCHLORIDE [Interacting]
     Active Substance: BETAHISTINE HYDROCHLORIDE
     Indication: Product used for unknown indication
     Dosage: 24 MG
     Route: 065
  271. METOCLOPRAMIDE [Interacting]
     Active Substance: METOCLOPRAMIDE
     Indication: Constipation
     Dosage: UNK
     Route: 065
  272. METOCLOPRAMIDE [Interacting]
     Active Substance: METOCLOPRAMIDE
     Dosage: AS NEEDED
     Route: 065
  273. METOCLOPRAMIDE [Interacting]
     Active Substance: METOCLOPRAMIDE
     Dosage: UNK
     Route: 065
  274. METOCLOPRAMIDE [Interacting]
     Active Substance: METOCLOPRAMIDE
     Route: 065
  275. METOCLOPRAMIDE [Interacting]
     Active Substance: METOCLOPRAMIDE
     Dosage: PRN
  276. METOCLOPRAMIDE [Interacting]
     Active Substance: METOCLOPRAMIDE
     Dosage: ON DEMAND IN THE EVENT OF CONSTIPATION (2 TABLETS), BUT FOR MANY MONTHS
     Route: 065
  277. METOCLOPRAMIDE [Interacting]
     Active Substance: METOCLOPRAMIDE
     Dosage: 10 MILLIGRAM, 2 TABLETS AS NEEDED, IN CASE OF CONSTIPATION, BUT FOR MANY MONTHS
     Route: 065
  278. METOCLOPRAMIDE [Interacting]
     Active Substance: METOCLOPRAMIDE
     Dosage: 10 MILLIGRAM, 2 TABLETS AS NEEDED, IN CASE OF CONSTIPATION, BUT FOR MANY MONTHS
     Route: 065
  279. METOCLOPRAMIDE [Interacting]
     Active Substance: METOCLOPRAMIDE
     Dosage: (INTERMITTENTLY IN CASE OF CONSTIPATION FOR MANY MONTHS)
     Route: 065
  280. OMEPRAZOLE MAGNESIUM [Interacting]
     Active Substance: OMEPRAZOLE MAGNESIUM
     Indication: Product used for unknown indication
     Dosage: 40 MG
     Route: 065
  281. TRAMADOL HYDROCHLORIDE [Interacting]
     Active Substance: TRAMADOL HYDROCHLORIDE
     Indication: Product used for unknown indication
     Dosage: UNK
     Route: 065
  282. TRAMADOL HYDROCHLORIDE [Interacting]
     Active Substance: TRAMADOL HYDROCHLORIDE
     Dosage: UNK
     Route: 065
  283. TRAMADOL HYDROCHLORIDE [Interacting]
     Active Substance: TRAMADOL HYDROCHLORIDE
     Dosage: UNK
     Route: 065
  284. FUROSEMIDE [Interacting]
     Active Substance: FUROSEMIDE
     Indication: Product used for unknown indication
     Dosage: UNK
     Route: 065
  285. FUROSEMIDE [Interacting]
     Active Substance: FUROSEMIDE
     Dosage: UNK
     Route: 065
  286. FUROSEMIDE [Interacting]
     Active Substance: FUROSEMIDE
     Dosage: UNK
     Route: 065
  287. HYDROXYZINE [Interacting]
     Active Substance: HYDROXYZINE HYDROCHLORIDE
     Indication: Product used for unknown indication
     Dosage: 40 MG
     Route: 065
  288. HYDROXYZINE [Interacting]
     Active Substance: HYDROXYZINE HYDROCHLORIDE
     Dosage: UNK
     Route: 065
  289. HYDROXYZINE [Interacting]
     Active Substance: HYDROXYZINE HYDROCHLORIDE
     Dosage: DOSAGE SCHEDULE: ON DEMAND, TYPICALLY 2 X/24 H
     Route: 065
  290. HYDROXYZINE [Interacting]
     Active Substance: HYDROXYZINE HYDROCHLORIDE
     Dosage: UNK
     Route: 065
  291. HYDROXYZINE [Interacting]
     Active Substance: HYDROXYZINE HYDROCHLORIDE
     Dosage: 2 IOU
     Route: 065
  292. HYDROXYZINE [Interacting]
     Active Substance: HYDROXYZINE HYDROCHLORIDE
     Dosage: UNK
     Route: 065
  293. HYDROXYZINE [Interacting]
     Active Substance: HYDROXYZINE HYDROCHLORIDE
     Dosage: WHEN NECESSARY, ON AVERAGE 2/24 H
     Route: 065
  294. HYDROXYZINE [Interacting]
     Active Substance: HYDROXYZINE HYDROCHLORIDE
     Dosage: 25 MG
  295. HYDROXYZINE [Interacting]
     Active Substance: HYDROXYZINE HYDROCHLORIDE
     Dosage: WHEN NECESSARY, ON AVERAGE 2/24 H
     Route: 065
  296. HYDROXYZINE [Interacting]
     Active Substance: HYDROXYZINE HYDROCHLORIDE
     Dosage: WHEN NECESSARY, ON AVERAGE 2/24 H
     Route: 065
  297. DONEPEZIL [Suspect]
     Active Substance: DONEPEZIL
     Indication: Product used for unknown indication
     Dosage: 5 MG
     Route: 065
  298. DONEPEZIL [Suspect]
     Active Substance: DONEPEZIL
     Dosage: 5 MG
     Route: 065
  299. VORTIOXETINE [Concomitant]
     Active Substance: VORTIOXETINE
     Indication: Product used for unknown indication
     Dosage: UNK
     Route: 065
  300. VORTIOXETINE [Concomitant]
     Active Substance: VORTIOXETINE
     Indication: Product used for unknown indication
     Dosage: 10 MG, QD/0-0-1
     Route: 065
  301. VORTIOXETINE [Concomitant]
     Active Substance: VORTIOXETINE
     Indication: Product used for unknown indication
  302. DEXTROSE [Concomitant]
     Active Substance: DEXTROSE\DEXTROSE MONOHYDRATE
     Indication: Product used for unknown indication
     Dosage: 1.5 MILLIGRAM, INTERMITTENTLY
     Route: 065
  303. DEXTROSE [Concomitant]
     Active Substance: DEXTROSE\DEXTROSE MONOHYDRATE
     Dosage: UNK
     Route: 065
  304. DEXTROSE [Concomitant]
     Active Substance: DEXTROSE\DEXTROSE MONOHYDRATE
  305. ALLOPURINOL [Concomitant]
     Active Substance: ALLOPURINOL
     Indication: Product used for unknown indication
     Dosage: 1-0-0
     Route: 065
  306. ALLOPURINOL [Concomitant]
     Active Substance: ALLOPURINOL
     Indication: Product used for unknown indication
     Dosage: 100 MG, QD/1-0-0
     Route: 065
  307. HYDROTALCITE [Concomitant]
     Active Substance: HYDROTALCITE
     Indication: Abdominal pain upper
     Dosage: 1 DOSAGE FORM, QD
     Route: 065
  308. QUETIAPINE [Concomitant]
     Active Substance: QUETIAPINE
     Indication: Product used for unknown indication
     Dosage: 25 MILLIGRAM, QD, 25 MG, QD/0-0-1
     Route: 065
  309. BETAHISTINE [Interacting]
     Active Substance: BETAHISTINE
     Indication: Product used for unknown indication
     Dosage: 1024 MILLIGRAM, QD
     Route: 065
  310. BETAHISTINE [Interacting]
     Active Substance: BETAHISTINE
     Dosage: 20 MILLIGRAM, BID
     Route: 065
  311. BETAHISTINE [Interacting]
     Active Substance: BETAHISTINE
     Dosage: 20 MILLIGRAM, QD
     Route: 065
  312. INSULIN NOS [Concomitant]
     Active Substance: INSULIN NOS
     Indication: Blood glucose abnormal
     Dosage: UNK, QD
     Route: 065
  313. RUFLOXACIN [Concomitant]
     Active Substance: RUFLOXACIN
     Indication: Nasopharyngitis
     Dosage: 2 DOSAGE FORM, QD, 1 DOSAGE FORM, BID
     Route: 048
  314. ZOLPIDEM [Concomitant]
     Active Substance: ZOLPIDEM TARTRATE
     Indication: Product used for unknown indication
     Dosage: UNK
     Route: 065
  315. OMEPRAZOLE [Concomitant]
     Active Substance: OMEPRAZOLE
     Indication: Product used for unknown indication
     Dosage: UNK
     Route: 065
  316. FUROSEMIDE [Concomitant]
     Active Substance: FUROSEMIDE
     Indication: Product used for unknown indication
     Dosage: UNK
     Route: 065
  317. HYDROCHLOROTHIAZIDE [Concomitant]
     Active Substance: HYDROCHLOROTHIAZIDE
     Indication: Product used for unknown indication
     Dosage: UNK
     Route: 065
  318. METFORMIN [Concomitant]
     Active Substance: METFORMIN HYDROCHLORIDE
     Indication: Type 2 diabetes mellitus
     Dosage: UNK
     Route: 065
  319. METFORMIN [Concomitant]
     Active Substance: METFORMIN HYDROCHLORIDE
     Dosage: UNK
     Route: 065
  320. DABIGATRAN [Concomitant]
     Active Substance: DABIGATRAN
     Indication: Product used for unknown indication
     Dosage: UNK
     Route: 065
  321. TRAMADOL [Concomitant]
     Active Substance: TRAMADOL\TRAMADOL HYDROCHLORIDE
     Indication: Product used for unknown indication
     Dosage: UNK
     Route: 065
  322. SPIRONOLACTONE [Concomitant]
     Active Substance: SPIRONOLACTONE
     Indication: Product used for unknown indication
     Dosage: UNK
     Route: 065
  323. ISOSORBIDE MONONITRATE [Concomitant]
     Active Substance: ISOSORBIDE MONONITRATE
     Indication: Product used for unknown indication
     Dosage: UNK
     Route: 065
  324. ALBUTEROL [Concomitant]
     Active Substance: ALBUTEROL
     Indication: Product used for unknown indication
     Dosage: UNK
     Route: 065
  325. BETAHISTINE [Concomitant]
     Active Substance: BETAHISTINE
     Indication: Product used for unknown indication
     Dosage: UNK
     Route: 065
  326. CITALOPRAM [Concomitant]
     Active Substance: CITALOPRAM HYDROBROMIDE
     Indication: Product used for unknown indication
     Dosage: UNK
     Route: 065
  327. LEVOTHYROXINE [Concomitant]
     Active Substance: LEVOTHYROXINE\LEVOTHYROXINE SODIUM
     Indication: Product used for unknown indication
     Dosage: UNK
     Route: 065
  328. METOCLOPRAMIDE [Concomitant]
     Active Substance: METOCLOPRAMIDE
     Indication: Product used for unknown indication
     Dosage: UNK
     Route: 065
  329. LAN DI [Concomitant]
     Indication: Hypertension
     Dosage: 1 DOSAGE FORM, QD
     Route: 048
  330. POTASSIUM CHLORIDE [Concomitant]
     Active Substance: POTASSIUM CHLORIDE
     Indication: Product used for unknown indication
     Dosage: UNKNOWN
     Route: 065
  331. TORSEMIDE [Concomitant]
     Active Substance: TORSEMIDE
     Indication: Product used for unknown indication
     Dosage: UNK
     Route: 065
  332. ACETAMINOPHEN [Concomitant]
     Active Substance: ACETAMINOPHEN
     Indication: Product used for unknown indication
     Dosage: UNK
     Route: 065
  333. ACETAMINOPHEN [Concomitant]
     Active Substance: ACETAMINOPHEN
     Dosage: 1000 MILLIGRAM, QD, 500 MG, BID/1-0-1
     Route: 065
  334. ACETAMINOPHEN [Concomitant]
     Active Substance: ACETAMINOPHEN
     Dosage: 500 MILLIGRAM, QD, 500 MG, QD/0-0-1
     Route: 065
  335. GLICLAZIDE [Concomitant]
     Active Substance: GLICLAZIDE
     Indication: Product used for unknown indication
     Dosage: UNK
     Route: 065
  336. RAMIPRIL [Concomitant]
     Active Substance: RAMIPRIL
     Indication: Product used for unknown indication
     Dosage: UNK
     Route: 065
  337. METOPROLOL [Concomitant]
     Active Substance: METOPROLOL
     Indication: Product used for unknown indication
     Dosage: UNK
     Route: 065
  338. AMLODIPINE BESYLATE [Concomitant]
     Active Substance: AMLODIPINE BESYLATE
     Indication: Hypertension
     Dosage: 1 DF, QD
     Route: 048
  339. ACARBOSE [Concomitant]
     Active Substance: ACARBOSE
     Indication: Hyperglycaemia
     Dosage: 3 DF, QD
     Route: 048

REACTIONS (17)
  - Blood cholesterol decreased [Unknown]
  - Atrioventricular block first degree [Recovered/Resolved]
  - Drug dependence [Unknown]
  - Medication error [Unknown]
  - Diabetes mellitus inadequate control [Unknown]
  - Initial insomnia [Unknown]
  - Mobility decreased [Recovered/Resolved]
  - Arthralgia [Unknown]
  - Hyperkalaemia [Unknown]
  - Nausea [Unknown]
  - Melaena [Unknown]
  - Depression [Unknown]
  - Fall [Recovered/Resolved]
  - Abdominal pain upper [Unknown]
  - Dizziness [Recovered/Resolved]
  - Dysuria [Unknown]
  - Drug interaction [Unknown]

NARRATIVE: CASE EVENT DATE: 20210101
